FAERS Safety Report 16173356 (Version 1)
Quarter: 2019Q2

REPORT INFORMATION
  Report Type: Spontaneous
  Country: US (occurrence: US)
  Receive Date: 20190408
  Receipt Date: 20190408
  Transmission Date: 20190711
  Serious: Yes (Other)
  Sender: FDA-Public Use
  Company Number: None

PATIENT
  Age: 92 Year
  Sex: Female
  Weight: 49.86 kg

DRUGS (15)
  1. SPRYCEL [Suspect]
     Active Substance: DASATINIB
     Indication: MYELOID LEUKAEMIA
     Route: 048
     Dates: start: 20190329
  2. ACETAMINOPHEN. [Concomitant]
     Active Substance: ACETAMINOPHEN
  3. ASPIRIN. [Concomitant]
     Active Substance: ASPIRIN
  4. RANITIDINE. [Concomitant]
     Active Substance: RANITIDINE
  5. CALCIUM +D [Concomitant]
     Active Substance: CALCIUM\VITAMIN D
  6. BISACODYL EC [Concomitant]
     Active Substance: BISACODYL
  7. ARICEPT [Concomitant]
     Active Substance: DONEPEZIL HYDROCHLORIDE
  8. MULTIPLE VITAMINS [Concomitant]
     Active Substance: VITAMINS
  9. MEMANTINE. [Concomitant]
     Active Substance: MEMANTINE
  10. ATORVASTATIN [Concomitant]
     Active Substance: ATORVASTATIN
  11. LEVOTHYROXINE. [Concomitant]
     Active Substance: LEVOTHYROXINE
  12. VALSARTAN. [Concomitant]
     Active Substance: VALSARTAN
  13. FERROUS SULFATE. [Concomitant]
     Active Substance: FERROUS SULFATE
  14. HYDROXYUREA. [Concomitant]
     Active Substance: HYDROXYUREA
  15. SENNA [Concomitant]
     Active Substance: SENNA LEAF\SENNOSIDES\SENNOSIDES A AND B

REACTIONS (3)
  - Cardiac disorder [None]
  - Dizziness [None]
  - Nausea [None]
